FAERS Safety Report 22761936 (Version 2)
Quarter: 2024Q2

REPORT INFORMATION
  Report Type: Spontaneous
  Country: US (occurrence: US)
  Receive Date: 20230728
  Receipt Date: 20240406
  Transmission Date: 20240716
  Serious: Yes (Hospitalization, Other)
  Sender: FDA-Public Use
  Company Number: US-AMNEAL PHARMACEUTICALS-2023-AMRX-02568

PATIENT
  Sex: Male

DRUGS (2)
  1. RYTARY [Suspect]
     Active Substance: CARBIDOPA\LEVODOPA
     Indication: Product used for unknown indication
     Dosage: 2 CAPSULES (36.25-145 MG), 3 /DAY
     Route: 048
  2. RYTARY [Suspect]
     Active Substance: CARBIDOPA\LEVODOPA
     Dosage: 2 CAPSULES (36.25-145 MG), 4 /DAY
     Route: 048
     Dates: start: 20240229

REACTIONS (4)
  - Diverticulitis [Unknown]
  - Lumbar vertebral fracture [Unknown]
  - Haemoglobin decreased [Unknown]
  - Confusional state [Unknown]
